FAERS Safety Report 6626992-8 (Version None)
Quarter: 2010Q1

REPORT INFORMATION
  Report Type: 
  Country: None (occurrence: None)
  Receive Date: 20100308
  Receipt Date: 20100223
  Transmission Date: 20100710
  Serious: No
  Sender: FDA-Public Use
  Company Number: 2010020105

PATIENT
  Sex: Female

DRUGS (2)
  1. ONSOLIS [Suspect]
  2. FENTORA (FENTANYL) [Concomitant]

REACTIONS (3)
  - DRUG DISPENSING ERROR [None]
  - DRUG TOLERANCE [None]
  - INTERCEPTED DRUG DISPENSING ERROR [None]
